FAERS Safety Report 6127503-6 (Version None)
Quarter: 2009Q1

REPORT INFORMATION
  Report Type: 
  Country: None (occurrence: None)
  Receive Date: 20090323
  Receipt Date: 20090319
  Transmission Date: 20090719
  Serious: Yes (Hospitalization)
  Sender: FDA-Public Use
  Company Number: FR-WYE-G03351409

PATIENT
  Sex: Female

DRUGS (9)
  1. ADVIL LIQUI-GELS [Suspect]
     Indication: INFLUENZA
     Dosage: 400 MG AS REQUIRED
     Route: 048
     Dates: start: 20090116, end: 20090120
  2. DEBRUMYL [Suspect]
     Indication: INFLUENZA
     Route: 048
     Dates: start: 20090116, end: 20090120
  3. TRIMEBUTINE [Suspect]
     Route: 048
     Dates: start: 20081128, end: 20090121
  4. DAFALGAN [Concomitant]
     Indication: INFLUENZA
     Dosage: AS REQUIRED
     Route: 048
     Dates: start: 20090116, end: 20090120
  5. TEGRETOL [Concomitant]
     Dosage: 600 MG TOTAL DAILY
     Route: 048
  6. ALENDRONIC ACID [Concomitant]
     Dosage: 70 MG TOTAL WEEKLY
     Route: 048
  7. CERVOXAN [Concomitant]
     Indication: COGNITIVE DISORDER
  8. TOPLEXIL [Suspect]
     Indication: INFLUENZA
     Dosage: 10 ML AS REQUIRED
     Route: 048
     Dates: start: 20090116, end: 20090120
  9. PAROXETINE HYDROCHLORIDE [Suspect]
     Route: 048
     Dates: start: 20081128, end: 20090121

REACTIONS (4)
  - DISORIENTATION [None]
  - GLOBAL AMNESIA [None]
  - MALAISE [None]
  - SPEECH DISORDER [None]
